FAERS Safety Report 9500704 (Version 1)
Quarter: 2013Q3

REPORT INFORMATION
  Report Type: Spontaneous
  Country: CN (occurrence: CN)
  Receive Date: 20130905
  Receipt Date: 20130905
  Transmission Date: 20140515
  Serious: Yes (Other)
  Sender: FDA-Public Use
  Company Number: CN-PFIZER INC-2013252756

PATIENT
  Age: 81 Year
  Sex: Male

DRUGS (6)
  1. TIGECYCLINE [Suspect]
     Dosage: 100 MG, SINGLE
     Dates: start: 201308
  2. TIGECYCLINE [Suspect]
     Dosage: 50 MG, 2X/DAY
     Dates: start: 201308, end: 20130826
  3. SULPERAZON [Concomitant]
     Indication: ACINETOBACTER INFECTION
     Dosage: UNK
     Dates: start: 20130816, end: 20130823
  4. MINOCIN [Concomitant]
     Indication: ACINETOBACTER INFECTION
     Dosage: 0.2 G, ONCE
     Dates: start: 20130816
  5. MINOCIN [Concomitant]
     Dosage: 0.1 G, ONCE PER 12 HOURS
     Dates: end: 20130823
  6. BIAPENEM [Concomitant]
     Indication: ACINETOBACTER INFECTION
     Dosage: UNK
     Dates: start: 20130816, end: 20130823

REACTIONS (2)
  - Haemorrhage [Unknown]
  - Platelet count decreased [Unknown]
